FAERS Safety Report 13329355 (Version 1)
Quarter: 2017Q1

REPORT INFORMATION
  Report Type: Spontaneous
  Country: US (occurrence: US)
  Receive Date: 20170313
  Receipt Date: 20170313
  Transmission Date: 20170428
  Serious: Yes (Other)
  Sender: FDA-Public Use
  Company Number: US-JNJFOC-20170309681

PATIENT
  Sex: Female

DRUGS (1)
  1. REMICADE [Suspect]
     Active Substance: INFLIXIMAB
     Indication: PRODUCT USED FOR UNKNOWN INDICATION
     Route: 042
     Dates: end: 201608

REACTIONS (5)
  - Pyoderma gangrenosum [Unknown]
  - Drug specific antibody present [Unknown]
  - Colectomy [Unknown]
  - Arthritis [Unknown]
  - Proctitis [Unknown]

NARRATIVE: CASE EVENT DATE: 2016
